FAERS Safety Report 8811312 (Version 2)
Quarter: 2012Q4

REPORT INFORMATION
  Report Type: 
  Country: GR (occurrence: GR)
  Receive Date: 20120927
  Receipt Date: 20121008
  Transmission Date: 20130627
  Serious: Yes (Other)
  Sender: FDA-Public Use
  Company Number: GR-ELI_LILLY_AND_COMPANY-GR201209003991

PATIENT
  Age: 29 Year
  Sex: Male

DRUGS (2)
  1. ZYPADHERA [Suspect]
     Indication: SCHIZOPHRENIA, PARANOID TYPE
     Dosage: 300 mg, every 15 days
     Route: 030
  2. CLOZAPINE [Concomitant]
     Indication: SCHIZOPHRENIA
     Dosage: 300 mg, UNK
     Route: 048

REACTIONS (5)
  - Hypoaesthesia [Recovered/Resolved]
  - Agitation [Recovered/Resolved]
  - Hypertension [Recovered/Resolved]
  - Tachycardia [Recovered/Resolved]
  - Anxiety [Recovered/Resolved]
